FAERS Safety Report 5005971-0 (Version None)
Quarter: 2006Q2

REPORT INFORMATION
  Report Type: 
  Country: None (occurrence: None)
  Receive Date: 20060517
  Receipt Date: 20060517
  Transmission Date: 20061013
  Serious: Yes (Death, Life-Threatening)
  Sender: FDA-Public Use
  Company Number: None

PATIENT
  Age: 16 Year
  Sex: Male
  Weight: 111 kg

DRUGS (1)
  1. NORMOCARB [Suspect]

REACTIONS (5)
  - AREFLEXIA [None]
  - DRUG ADMINISTRATION ERROR [None]
  - DRUG PRESCRIBING ERROR [None]
  - ENCEPHALITIS [None]
  - HYPERNATRAEMIA [None]
